FAERS Safety Report 15221706 (Version 1)
Quarter: 2018Q3

REPORT INFORMATION
  Report Type: Spontaneous
  Country: GB (occurrence: GB)
  Receive Date: 20180731
  Receipt Date: 20180731
  Transmission Date: 20181010
  Serious: Yes (Other)
  Sender: FDA-Public Use
  Company Number: GB-SEBELA IRELAND LIMITED-2018SEB00195

PATIENT
  Age: 45 Year
  Sex: Male

DRUGS (1)
  1. ATROPINE. [Suspect]
     Active Substance: ATROPINE
     Indication: CATARACT CONGENITAL
     Dosage: 1 %, UNK (EVERY 5 DAYS, EACH EYE)
     Route: 047

REACTIONS (2)
  - Pigment dispersion syndrome [Unknown]
  - Ocular hypertension [Recovering/Resolving]
